FAERS Safety Report 7033800-2 (Version None)
Quarter: 2010Q4

REPORT INFORMATION
  Report Type: 
  Country: None (occurrence: None)
  Receive Date: 20101007
  Receipt Date: 20100924
  Transmission Date: 20110411
  Serious: Yes (Life-Threatening, Hospitalization, Other)
  Sender: FDA-Public Use
  Company Number: US-ACTELION-A-NJ2010-39028

PATIENT
  Sex: Female

DRUGS (6)
  1. VELETRI [Suspect]
     Indication: PULMONARY ARTERIAL HYPERTENSION
     Dosage: 12 NG/KG, PER MIN
     Route: 041
     Dates: start: 20100727
  2. VELETRI [Suspect]
     Dosage: 14 NG/KG, PER MIN
     Route: 041
     Dates: start: 20100803, end: 20100801
  3. VELETRI [Suspect]
     Dosage: 16 NG/KG, PER MIN
     Route: 041
     Dates: start: 20100801, end: 20100801
  4. VELETRI [Suspect]
     Dosage: 18 NG/KG, PER MIN
     Route: 041
     Dates: start: 20100801
  5. DILTIAZEM [Suspect]
  6. COUMADIN [Concomitant]

REACTIONS (9)
  - DEVICE RELATED INFECTION [None]
  - DYSPNOEA [None]
  - HYPOTENSION [None]
  - LACRIMATION INCREASED [None]
  - NASAL CONGESTION [None]
  - NAUSEA [None]
  - RESPIRATORY FAILURE [None]
  - TACHYCARDIA [None]
  - TREMOR [None]
